FAERS Safety Report 4360845-3 (Version None)
Quarter: 2004Q2

REPORT INFORMATION
  Report Type: 
  Country: None (occurrence: None)
  Receive Date: 20040517
  Receipt Date: 20040505
  Transmission Date: 20050107
  Serious: Yes (Death)
  Sender: FDA-Public Use
  Company Number: 2004212578NO

PATIENT
  Age: 82 Year
  Sex: Male

DRUGS (7)
  1. SOLU-MEDROL [Suspect]
     Indication: CHRONIC OBSTRUCTIVE AIRWAYS DISEASE
     Dosage: 20 MG, BID, IV
     Route: 042
     Dates: start: 20040401, end: 20040402
  2. WARFARIN SODIUM [Suspect]
     Indication: ATRIAL FIBRILLATION
     Dosage: 2.5 MG, 15 TIMES A WEEK, ORAL
     Route: 048
     Dates: end: 20040329
  3. LIPITOR [Concomitant]
  4. VIBRAMYCIN [Concomitant]
  5. ATROVENT [Concomitant]
  6. VENTOLIN [Concomitant]
  7. THEO-DUR [Concomitant]

REACTIONS (4)
  - DUODENAL ULCER HAEMORRHAGE [None]
  - HAEMATEMESIS [None]
  - MELAENA [None]
  - PNEUMONIA [None]
